FAERS Safety Report 24328421 (Version 4)
Quarter: 2024Q3

REPORT INFORMATION
  Report Type: Spontaneous
  Country: US (occurrence: US)
  Receive Date: 20240917
  Receipt Date: 20240919
  Transmission Date: 20241016
  Serious: Yes (Hospitalization)
  Sender: ROCHE
  Company Number: US-ROCHE-10000078104

PATIENT
  Sex: Male
  Weight: 30.84 kg

DRUGS (1)
  1. HEMLIBRA [Suspect]
     Active Substance: EMICIZUMAB-KXWH
     Indication: Factor VIII deficiency
     Dosage: ONGOING YES
     Route: 058
     Dates: start: 202309, end: 202309

REACTIONS (4)
  - Arthralgia [Unknown]
  - Arthralgia [Unknown]
  - Pneumonia [Unknown]
  - Haemorrhage [Unknown]
